FAERS Safety Report 14756395 (Version 4)
Quarter: 2020Q2

REPORT INFORMATION
  Report Type: Spontaneous
  Country: US (occurrence: US)
  Receive Date: 20180413
  Receipt Date: 20200522
  Transmission Date: 20200713
  Serious: Yes (Hospitalization, Other)
  Sender: FDA-Public Use
  Company Number: US-ASTRAZENECA-2018SE44974

PATIENT
  Age: 25876 Day
  Sex: Male

DRUGS (38)
  1. DILTIAZEM HCL [Concomitant]
     Active Substance: DILTIAZEM HYDROCHLORIDE
  2. ASPIRIN. [Concomitant]
     Active Substance: ASPIRIN
  3. FINASTERIDE. [Concomitant]
     Active Substance: FINASTERIDE
  4. METFORMIN HCL [Concomitant]
     Active Substance: METFORMIN HYDROCHLORIDE
  5. CARVEDILOL. [Concomitant]
     Active Substance: CARVEDILOL
  6. LISINOPRIL. [Concomitant]
     Active Substance: LISINOPRIL
  7. MICONAZOLE NITRATE. [Concomitant]
     Active Substance: MICONAZOLE NITRATE
  8. ATENOLOL. [Concomitant]
     Active Substance: ATENOLOL
  9. APIXABAN [Concomitant]
     Active Substance: APIXABAN
  10. ISOPHANE INSULIN [Concomitant]
     Active Substance: INSULIN NOS
  11. POTASSIUM PHOSPHATE [Concomitant]
     Active Substance: POTASSIUM PHOSPHATE
  12. SODIUM CHLORIDE. [Concomitant]
     Active Substance: SODIUM CHLORIDE
  13. ONGLYZA [Suspect]
     Active Substance: SAXAGLIPTIN HYDROCHLORIDE
     Indication: DIABETES MELLITUS
     Route: 048
     Dates: start: 20160922, end: 20161211
  14. ONGLYZA [Suspect]
     Active Substance: SAXAGLIPTIN HYDROCHLORIDE
     Indication: DIABETES MELLITUS
     Route: 048
     Dates: start: 20170104, end: 20180224
  15. GLIPIZIDE. [Concomitant]
     Active Substance: GLIPIZIDE
  16. DICLOFENAC NA [Concomitant]
     Active Substance: DICLOFENAC SODIUM
  17. WARFARIN NA [Concomitant]
  18. PRAVASTATIN. [Concomitant]
     Active Substance: PRAVASTATIN
  19. TERAZOSIN [Concomitant]
     Active Substance: TERAZOSIN HYDROCHLORIDE
  20. ENOXAPARIN [Concomitant]
     Active Substance: ENOXAPARIN
  21. ALTEPLASE. [Concomitant]
     Active Substance: ALTEPLASE
  22. MELOXICAM. [Concomitant]
     Active Substance: MELOXICAM
  23. PROPOFOL. [Concomitant]
     Active Substance: PROPOFOL
  24. DOXAZOSIN [Concomitant]
     Active Substance: DOXAZOSIN MESYLATE
  25. HEPARIN FLUSH [Concomitant]
     Active Substance: HEPARIN SODIUM
  26. LOSARTAN. [Concomitant]
     Active Substance: LOSARTAN
  27. CALCIUM GLUCONATE. [Concomitant]
     Active Substance: CALCIUM GLUCONATE
  28. ONGLYZA [Suspect]
     Active Substance: SAXAGLIPTIN HYDROCHLORIDE
     Indication: DIABETES MELLITUS
     Route: 048
     Dates: start: 2015, end: 2018
  29. SIMVASTATIN. [Concomitant]
     Active Substance: SIMVASTATIN
  30. NITROFURANTOIN. [Concomitant]
     Active Substance: NITROFURANTOIN
  31. NYSTATIN. [Concomitant]
     Active Substance: NYSTATIN
  32. VIAGRA [Concomitant]
     Active Substance: SILDENAFIL CITRATE
  33. MAGNESIUM SULFATE. [Concomitant]
     Active Substance: MAGNESIUM SULFATE
  34. KOMBIGLYZE XR [Suspect]
     Active Substance: METFORMIN HYDROCHLORIDE\SAXAGLIPTIN HYDROCHLORIDE
     Route: 048
     Dates: start: 2015, end: 2018
  35. AMLODIPINE [Concomitant]
     Active Substance: AMLODIPINE BESYLATE
  36. OXYBUTYNIN. [Concomitant]
     Active Substance: OXYBUTYNIN CHLORIDE
  37. OMEPRAZOLE. [Concomitant]
     Active Substance: OMEPRAZOLE
  38. DARBEPOETIN [Concomitant]
     Active Substance: DARBEPOETIN ALFA

REACTIONS (5)
  - Cardiac failure [Unknown]
  - Myocardial ischaemia [Unknown]
  - Cardiovascular disorder [Unknown]
  - Respiratory failure [Unknown]
  - Cardiac failure congestive [Unknown]

NARRATIVE: CASE EVENT DATE: 20170201
